FAERS Safety Report 21276843 (Version 1)
Quarter: 2022Q3

REPORT INFORMATION
  Report Type: Spontaneous
  Country: US (occurrence: US)
  Receive Date: 20220831
  Receipt Date: 20220831
  Transmission Date: 20221027
  Serious: No
  Sender: FDA-Public Use
  Company Number: US-ABBVIE-22K-163-4347504-00

PATIENT
  Sex: Male
  Weight: 77.180 kg

DRUGS (4)
  1. HUMIRA [Suspect]
     Active Substance: ADALIMUMAB
     Indication: Hidradenitis
     Route: 058
     Dates: start: 202202
  2. SEROQUEL [Concomitant]
     Active Substance: QUETIAPINE FUMARATE
     Indication: Bipolar disorder
  3. OMEPRAZOLE [Concomitant]
     Active Substance: OMEPRAZOLE
     Indication: Dyspepsia
  4. AMITIZA [Concomitant]
     Active Substance: LUBIPROSTONE
     Indication: Irritable bowel syndrome

REACTIONS (6)
  - Hyperhidrosis [Unknown]
  - Therapeutic response shortened [Not Recovered/Not Resolved]
  - Groin pain [Not Recovered/Not Resolved]
  - Swelling [Unknown]
  - Abdominal pain lower [Unknown]
  - Device issue [Unknown]

NARRATIVE: CASE EVENT DATE: 20220101
